FAERS Safety Report 4324681-6 (Version None)
Quarter: 2004Q1

REPORT INFORMATION
  Report Type: 
  Country: None (occurrence: None)
  Receive Date: 20040322
  Receipt Date: 20040205
  Transmission Date: 20041129
  Serious: Yes (Hospitalization)
  Sender: FDA-Public Use
  Company Number: 2004197402CA

PATIENT
  Age: 46 Year
  Sex: Female
  Weight: 64 kg

DRUGS (7)
  1. IRINOTECAN (IRINOTECAN) SOLUTION, STERILE [Suspect]
     Indication: CERVIX CARCINOMA
     Dosage: 167 MG, CYCLE 1, EVERY 3 WEEKS, IV
     Route: 042
     Dates: start: 20040120, end: 20040120
  2. PHARMOCRUBICIN (EPIRUBICIN HYDROCHLORIDE) POWDER, STERILE [Suspect]
     Indication: CERVIX CARCINOMA
     Dosage: 83 MG, CYCLE 1, EVERY 3 WEEKS, IV
     Route: 042
     Dates: start: 20040120, end: 20040120
  3. CISPLATIN [Suspect]
     Indication: CERVIX CARCINOMA
     Dosage: 83.3 MG, CYCLE 1, EVERY 3 WEEKS, IV
     Route: 042
     Dates: start: 20040120, end: 20040120
  4. PERCOCET (OXYCODONE TEREPHTHALATE, OXYCODONE HYDROCHLORIDE) [Concomitant]
  5. OXYCONTIN [Concomitant]
  6. COLACE (DOCUSATE SODIUM) [Concomitant]
  7. FLEET ENEMA (SODIUM PHOSPHATE DIBASIC) [Concomitant]

REACTIONS (8)
  - BLOOD PRESSURE DIASTOLIC DECREASED [None]
  - CONSTIPATION [None]
  - DEHYDRATION [None]
  - EATING DISORDER [None]
  - NAUSEA [None]
  - PELVIC PAIN [None]
  - RESPIRATORY RATE INCREASED [None]
  - VOMITING [None]
